FAERS Safety Report 12388016 (Version 1)
Quarter: 2016Q2

REPORT INFORMATION
  Report Type: Spontaneous
  Country: US (occurrence: None)
  Receive Date: 20160519
  Receipt Date: 20160519
  Transmission Date: 20160815
  Serious: Yes (Other)
  Sender: FDA-Public Use
  Company Number: None

PATIENT
  Age: 47 Year
  Sex: Male
  Weight: 110.22 kg

DRUGS (1)
  1. SILDENAFIL 20MG [Suspect]
     Active Substance: SILDENAFIL
     Indication: ERECTILE DYSFUNCTION
     Dosage: 20MG 2 TAB 1/2 H B4 SEX ORAL
     Route: 048
     Dates: start: 20140616, end: 20160115

REACTIONS (1)
  - Nausea [None]

NARRATIVE: CASE EVENT DATE: 20160115
